FAERS Safety Report 5736990-4 (Version None)
Quarter: 2008Q2

REPORT INFORMATION
  Report Type: 
  Country: None (occurrence: None)
  Receive Date: 20080512
  Receipt Date: 20080512
  Transmission Date: 20081010
  Serious: Yes (Other)
  Sender: FDA-Public Use
  Company Number: None

PATIENT
  Age: 47 Year
  Sex: Male

DRUGS (1)
  1. ABILIFY [Suspect]
     Indication: SCHIZOPHRENIA
     Dosage: 10 MG PO HS
     Route: 048
     Dates: start: 20080310, end: 20080313

REACTIONS (3)
  - JOINT STIFFNESS [None]
  - MOUTH BREATHING [None]
  - POSTURE ABNORMAL [None]
